FAERS Safety Report 6816633-9 (Version None)
Quarter: 2010Q3

REPORT INFORMATION
  Report Type: 
  Country: None (occurrence: None)
  Receive Date: 20100706
  Receipt Date: 20100622
  Transmission Date: 20110219
  Serious: Yes (Hospitalization, Other)
  Sender: FDA-Public Use
  Company Number: US-JNJFOC-20100503636

PATIENT
  Age: 11 Year
  Sex: Female
  Weight: 32.21 kg

DRUGS (2)
  1. CHILDREN'S MOTRIN [Suspect]
     Indication: MALAISE
     Route: 048
  2. CHILDREN'S MOTRIN [Suspect]
     Indication: PYREXIA
     Route: 048

REACTIONS (9)
  - ABDOMINAL PAIN UPPER [None]
  - BENIGN INTRACRANIAL HYPERTENSION [None]
  - DIPLOPIA [None]
  - DIZZINESS [None]
  - HEADACHE [None]
  - MOUTH ULCERATION [None]
  - PRODUCT QUALITY ISSUE [None]
  - PYREXIA [None]
  - RASH [None]
